FAERS Safety Report 9383370 (Version 1)
Quarter: 2013Q3

REPORT INFORMATION
  Report Type: Report from Study
  Country: US (occurrence: US)
  Receive Date: 20130704
  Receipt Date: 20130704
  Transmission Date: 20140515
  Serious: Yes (Other)
  Sender: FDA-Public Use
  Company Number: US-009507513-1306USA014472

PATIENT
  Sex: Female
  Weight: 95 kg

DRUGS (1)
  1. BOCEPREVIR [Suspect]

REACTIONS (1)
  - Cerebrovascular accident [Recovering/Resolving]
